FAERS Safety Report 5467545-7 (Version None)
Quarter: 2007Q3

REPORT INFORMATION
  Report Type: 
  Country: None (occurrence: None)
  Receive Date: 20070925
  Receipt Date: 20070921
  Transmission Date: 20080115
  Serious: No
  Sender: FDA-Public Use
  Company Number: US-BOEHRINGER INGELHEIM PHARMACEUTICALS, INC.-2007-BP-19371BP

PATIENT
  Sex: Female

DRUGS (2)
  1. MIRAPEX [Suspect]
     Indication: PARKINSON'S DISEASE
     Route: 048
  2. LYRICA [Concomitant]

REACTIONS (6)
  - BALANCE DISORDER [None]
  - CARPAL TUNNEL SYNDROME [None]
  - EYE DISORDER [None]
  - MUSCLE DISORDER [None]
  - OEDEMA [None]
  - OVERWEIGHT [None]
